FAERS Safety Report 20333408 (Version 1)
Quarter: 2022Q1

REPORT INFORMATION
  Report Type: Spontaneous
  Country: US (occurrence: None)
  Receive Date: 20220113
  Receipt Date: 20220113
  Transmission Date: 20220424
  Serious: Yes (Life-Threatening, Hospitalization, Other)
  Sender: FDA-Public Use
  Company Number: 2022A018538

PATIENT
  Age: 52 Year
  Sex: Female

DRUGS (3)
  1. OSIMERTINIB [Suspect]
     Active Substance: OSIMERTINIB
     Indication: Non-small cell lung cancer stage IV
     Route: 048
  2. OSIMERTINIB [Suspect]
     Active Substance: OSIMERTINIB
     Indication: Non-small cell lung cancer stage IV
     Route: 048
  3. APIXABAN [Concomitant]
     Active Substance: APIXABAN
     Route: 065

REACTIONS (7)
  - Myositis [Recovering/Resolving]
  - Myopathy [Recovering/Resolving]
  - Blood creatine phosphokinase increased [Recovering/Resolving]
  - Hepatitis [Recovering/Resolving]
  - Dysphagia [Unknown]
  - Muscular weakness [Unknown]
  - Muscle necrosis [Unknown]
